FAERS Safety Report 25527838 (Version 6)
Quarter: 2025Q4

REPORT INFORMATION
  Report Type: Report from Study
  Country: US (occurrence: US)
  Receive Date: 20250708
  Receipt Date: 20251024
  Transmission Date: 20260118
  Serious: Yes (Hospitalization)
  Sender: ACADIA PHARMACEUTICALS
  Company Number: US-ACADIA PHARMACEUTICALS INC.-ACA-2025-PIM-007927

PATIENT
  Age: 75 Year
  Sex: Male

DRUGS (15)
  1. NUPLAZID [Suspect]
     Active Substance: PIMAVANSERIN TARTRATE
     Indication: Parkinson^s disease psychosis
     Dosage: 34 MILLIGRAM, QD
     Route: 048
     Dates: start: 20250612
  2. DULOXETINE [Concomitant]
     Active Substance: DULOXETINE
  3. OMEPRAZOLE [Concomitant]
     Active Substance: OMEPRAZOLE
  4. TRIAMTERENE [Concomitant]
     Active Substance: TRIAMTERENE
  5. METOPROLOL SUCCINATE [Concomitant]
     Active Substance: METOPROLOL SUCCINATE
  6. ADDERALL [Concomitant]
     Active Substance: AMPHETAMINE ASPARTATE\AMPHETAMINE SULFATE\DEXTROAMPHETAMINE SACCHARATE\DEXTROAMPHETAMINE SULFATE
  7. GABAPENTIN [Concomitant]
     Active Substance: GABAPENTIN
  8. WELLBUTRIN XL [Concomitant]
     Active Substance: BUPROPION HYDROCHLORIDE
  9. CARBIDOPA LEVODOPA [Concomitant]
     Active Substance: CARBIDOPA\LEVODOPA
  10. ZOLPIDEM [Concomitant]
     Active Substance: ZOLPIDEM TARTRATE
  11. CALCIUM [Concomitant]
     Active Substance: CALCIUM
  12. MIDODRINE [Concomitant]
     Active Substance: MIDODRINE
  13. TRIHEXYPHENIDYL [Concomitant]
     Active Substance: TRIHEXYPHENIDYL
  14. CIMETIDINE [Concomitant]
     Active Substance: CIMETIDINE
  15. CELEBREX [Concomitant]
     Active Substance: CELECOXIB

REACTIONS (6)
  - Neck injury [Not Recovered/Not Resolved]
  - Fall [Not Recovered/Not Resolved]
  - Illness [Recovered/Resolved]
  - Feeding tube user [Not Recovered/Not Resolved]
  - Product use issue [Not Recovered/Not Resolved]
  - Intentional dose omission [Unknown]

NARRATIVE: CASE EVENT DATE: 20250625
